FAERS Safety Report 10697709 (Version 1)
Quarter: 2015Q1

REPORT INFORMATION
  Report Type: Spontaneous
  Country: PT (occurrence: PT)
  Receive Date: 20150108
  Receipt Date: 20150108
  Transmission Date: 20150721
  Serious: Yes (Death)
  Sender: FDA-Public Use
  Company Number: PT-ASTRAZENECA-2015SE00591

PATIENT
  Age: 25 Year
  Sex: Female

DRUGS (2)
  1. SODIUM CHLORIDE. [Concomitant]
     Active Substance: SODIUM CHLORIDE
     Route: 042
  2. PROPOFOL. [Suspect]
     Active Substance: PROPOFOL
     Indication: SUICIDE ATTEMPT
     Route: 042

REACTIONS (3)
  - Drug abuse [Fatal]
  - Completed suicide [Fatal]
  - Toxicity to various agents [Fatal]
